FAERS Safety Report 15811859 (Version 2)
Quarter: 2019Q1

REPORT INFORMATION
  Report Type: Spontaneous
  Country: AT (occurrence: AT)
  Receive Date: 20190111
  Receipt Date: 20190130
  Transmission Date: 20190417
  Serious: Yes (Death, Other)
  Sender: FDA-Public Use
  Company Number: PHHY2019AT004792

PATIENT
  Age: 77 Year
  Sex: Female

DRUGS (6)
  1. MEKINIST [Suspect]
     Active Substance: TRAMETINIB DIMETHYL SULFOXIDE
     Dosage: UNK, QD
     Route: 065
     Dates: start: 201712
  2. MEKINIST [Suspect]
     Active Substance: TRAMETINIB DIMETHYL SULFOXIDE
     Indication: LUNG ADENOCARCINOMA STAGE IV
     Dosage: UNK UNK, QD
     Route: 065
     Dates: start: 201708, end: 201712
  3. MEKINIST [Suspect]
     Active Substance: TRAMETINIB DIMETHYL SULFOXIDE
     Dosage: UNK, QD
     Route: 065
     Dates: start: 201803
  4. TAFINLAR [Suspect]
     Active Substance: DABRAFENIB MESYLATE
     Dosage: 1 DF, BID (1-0-1)
     Route: 065
     Dates: start: 201712
  5. TAFINLAR [Suspect]
     Active Substance: DABRAFENIB MESYLATE
     Indication: LUNG ADENOCARCINOMA STAGE IV
     Dosage: 2 DF, BID (2-0-2)
     Route: 065
     Dates: start: 201708, end: 201712
  6. TAFINLAR [Suspect]
     Active Substance: DABRAFENIB MESYLATE
     Dosage: 225 MG, QD (75 MG IN MNG AND 150  MG IN EVNING) (1-0-2)
     Route: 065
     Dates: start: 201803

REACTIONS (4)
  - Malignant neoplasm progression [Fatal]
  - Metastases to bone [Unknown]
  - Gastrointestinal disorder [Unknown]
  - Lung adenocarcinoma stage IV [Fatal]
